FAERS Safety Report 7338896-6 (Version None)
Quarter: 2011Q1

REPORT INFORMATION
  Report Type: 
  Country: None (occurrence: None)
  Receive Date: 20110308
  Receipt Date: 20110228
  Transmission Date: 20110831
  Serious: Yes (Other)
  Sender: FDA-Public Use
  Company Number: US-ROCHE-663815

PATIENT
  Sex: Male
  Weight: 70.3 kg

DRUGS (4)
  1. KENALOG [Concomitant]
     Dosage: DOSE: 3 MG PER CC
     Route: 026
     Dates: start: 19960928
  2. ACCUTANE [Suspect]
     Indication: ACNE
     Route: 065
     Dates: start: 19960803
  3. ACCUTANE [Suspect]
     Dosage: 40 MG ON ONE DAY AND 80 MG ON THE NEXT DAY
     Route: 065
     Dates: start: 19960928
  4. ACCUTANE [Suspect]
     Route: 065
     Dates: start: 19961019, end: 19970130

REACTIONS (19)
  - ARTHRALGIA [None]
  - ANAL SKIN TAGS [None]
  - IRRITABLE BOWEL SYNDROME [None]
  - INTESTINAL OBSTRUCTION [None]
  - ANAL FISTULA [None]
  - LARGE INTESTINAL ULCER [None]
  - DEPRESSION [None]
  - ANAL ABSCESS [None]
  - ORAL HERPES [None]
  - LIP DRY [None]
  - CROHN'S DISEASE [None]
  - COLITIS [None]
  - ILEAL STENOSIS [None]
  - ARTHRITIS [None]
  - BLOOD TRIGLYCERIDES INCREASED [None]
  - ILEITIS [None]
  - HAEMORRHOIDS [None]
  - INFLAMMATORY BOWEL DISEASE [None]
  - ANAL FISSURE [None]
